FAERS Safety Report 6399010-7 (Version None)
Quarter: 2009Q4

REPORT INFORMATION
  Report Type: 
  Country: None (occurrence: None)
  Receive Date: 20091013
  Receipt Date: 20090622
  Transmission Date: 20100525
  Serious: Yes (Other)
  Sender: FDA-Public Use
  Company Number: BR-PFIZER INC-2009218036

PATIENT
  Age: 54 Year

DRUGS (1)
  1. CHAMPIX [Suspect]
     Indication: TOBACCO USER
     Dosage: 0.5 MG, 2X/DAY
     Route: 048
     Dates: start: 20090520

REACTIONS (3)
  - DEPRESSION [None]
  - RIB FRACTURE [None]
  - SUICIDE ATTEMPT [None]
